FAERS Safety Report 4833633-9 (Version None)
Quarter: 2005Q4

REPORT INFORMATION
  Report Type: 
  Country: None (occurrence: None)
  Receive Date: 20051121
  Receipt Date: 20051028
  Transmission Date: 20060501
  Serious: Yes (Other)
  Sender: FDA-Public Use
  Company Number: PHEH2005US11966

PATIENT
  Age: 75 Year
  Sex: Female

DRUGS (1)
  1. GENTEAL LUBRICATING EYE GEL (NVO) [Suspect]
     Indication: DRY EYE
     Dosage: 1 GTT, QHS (OU)
     Dates: start: 20030101

REACTIONS (3)
  - CATARACT OPERATION [None]
  - EYE IRRITATION [None]
  - EYE PAIN [None]
